FAERS Safety Report 6866395-4 (Version None)
Quarter: 2010Q3

REPORT INFORMATION
  Report Type: 
  Country: None (occurrence: None)
  Receive Date: 20100722
  Receipt Date: 20100715
  Transmission Date: 20110219
  Serious: Yes (Other)
  Sender: FDA-Public Use
  Company Number: US-BRISTOL-MYERS SQUIBB COMPANY-15157399

PATIENT
  Age: 52 Year
  Sex: Male

DRUGS (17)
  1. EFAVIRENZ TABS [Suspect]
     Route: 048
  2. STAVUDINE [Suspect]
     Route: 065
  3. DIDANOSINE [Suspect]
     Route: 065
  4. NORVIR [Suspect]
     Route: 065
  5. RALTEGRAVIR [Suspect]
     Dosage: RALTEGRAVIR POTASSIUM TAB
     Route: 048
  6. SAQUINAVIR [Suspect]
     Route: 065
  7. NELFINAVIR MESYLATE [Suspect]
     Route: 065
  8. ZIDOVUDINE [Suspect]
     Route: 065
  9. LAMIVUDINE [Suspect]
     Route: 065
  10. ABACAVIR SULFATE [Suspect]
     Route: 065
  11. NEVIRAPINE [Suspect]
     Route: 065
  12. DELAVIRDINE MESYLATE [Suspect]
     Route: 065
  13. INDINIVIR SULFATE [Suspect]
     Dosage: INDINAVIR SULFATE CAP
     Route: 048
  14. LOPINAVIR [Suspect]
     Route: 065
  15. TENOFOVIR [Suspect]
     Route: 065
  16. DARUNAVIR [Suspect]
     Route: 065
  17. ETRAVIRINE [Suspect]
     Route: 065

REACTIONS (5)
  - DIPLOPIA [None]
  - EYELID PTOSIS [None]
  - LIPODYSTROPHY ACQUIRED [None]
  - MITOCHONDRIAL TOXICITY [None]
  - PROGRESSIVE EXTERNAL OPHTHALMOPLEGIA [None]
